FAERS Safety Report 20487178 (Version 10)
Quarter: 2022Q3

REPORT INFORMATION
  Report Type: Report from Study
  Country: JP (occurrence: JP)
  Receive Date: 20220217
  Receipt Date: 20220905
  Transmission Date: 20221027
  Serious: Yes (Hospitalization, Other)
  Sender: FDA-Public Use
  Company Number: JP-BRISTOL-MYERS SQUIBB COMPANY-BMS-2022-021609

PATIENT
  Age: 64 Year
  Sex: Male
  Weight: 63.5 kg

DRUGS (19)
  1. YERVOY [Suspect]
     Active Substance: IPILIMUMAB
     Indication: Non-small cell lung cancer recurrent
     Route: 041
     Dates: start: 20210810, end: 20211116
  2. YERVOY [Suspect]
     Active Substance: IPILIMUMAB
     Route: 041
     Dates: end: 20220104
  3. YERVOY [Suspect]
     Active Substance: IPILIMUMAB
  4. OPDIVO [Suspect]
     Active Substance: NIVOLUMAB
     Indication: Non-small cell lung cancer recurrent
     Route: 041
     Dates: start: 20210810, end: 20211116
  5. OPDIVO [Suspect]
     Active Substance: NIVOLUMAB
     Route: 041
     Dates: end: 20220104
  6. PEMETREXED [Suspect]
     Active Substance: PEMETREXED
     Indication: Non-small cell lung cancer recurrent
     Dosage: ??
     Route: 065
     Dates: start: 20210810, end: 20210810
  7. PEMETREXED [Suspect]
     Active Substance: PEMETREXED
     Route: 065
     Dates: start: 20210914, end: 20210914
  8. PEMETREXED [Suspect]
     Active Substance: PEMETREXED
     Dosage: ??
     Route: 065
     Dates: end: 20210914
  9. PEMETREXED [Suspect]
     Active Substance: PEMETREXED
     Dosage: ??
     Route: 065
     Dates: end: 20220104
  10. CARBOPLATIN [Suspect]
     Active Substance: CARBOPLATIN
     Indication: Non-small cell lung cancer recurrent
     Route: 065
     Dates: start: 20210810, end: 20210810
  11. CARBOPLATIN [Suspect]
     Active Substance: CARBOPLATIN
     Route: 065
     Dates: end: 20210914
  12. CARBOPLATIN [Suspect]
     Active Substance: CARBOPLATIN
     Route: 065
     Dates: end: 20220104
  13. DENOSUMAB [Concomitant]
     Active Substance: DENOSUMAB
     Indication: Product used for unknown indication
     Dosage: ??
     Route: 058
     Dates: end: 20220104
  14. DENOSUMAB [Concomitant]
     Active Substance: DENOSUMAB
  15. DENOSUMAB [Concomitant]
     Active Substance: DENOSUMAB
  16. CARBAZOCHROME SULFONATE NA [Concomitant]
     Indication: Product used for unknown indication
     Route: 048
  17. TRANEXAMIC ACID [Concomitant]
     Active Substance: TRANEXAMIC ACID
     Indication: Product used for unknown indication
     Route: 048
  18. PANVITAN [VITAMINS NOS] [Concomitant]
     Indication: Product used for unknown indication
     Route: 065
  19. METHYLCOBALAMIN [Concomitant]
     Active Substance: METHYLCOBALAMIN
     Indication: Product used for unknown indication
     Route: 065

REACTIONS (4)
  - Secondary adrenocortical insufficiency [Recovering/Resolving]
  - Myelosuppression [Recovered/Resolved]
  - Rash [Recovering/Resolving]
  - Movement disorder [Unknown]

NARRATIVE: CASE EVENT DATE: 20210819
